FAERS Safety Report 4569004-2 (Version None)
Quarter: 2005Q1

REPORT INFORMATION
  Report Type: 
  Country: None (occurrence: None)
  Receive Date: 20050203
  Receipt Date: 20040722
  Transmission Date: 20050727
  Serious: Yes (Congenital Anomaly)
  Sender: FDA-Public Use
  Company Number: NL-SOLVAY-00304002475

PATIENT
  Weight: 2.56 kg

DRUGS (2)
  1. FEVARIN [Suspect]
     Indication: DRUG EXPOSURE DURING PREGNANCY
     Dosage: DAILY DOSE: 100 MG. FREQUENCY:UNKNOWN
     Route: 064
  2. ALDOMET [Suspect]
     Indication: DRUG EXPOSURE DURING PREGNANCY
     Dosage: DAILY DOSE: 750 MG.
     Route: 064

REACTIONS (2)
  - DRUG EXPOSURE DURING PREGNANCY [None]
  - SMALL FOR DATES BABY [None]
